FAERS Safety Report 8326427-3 (Version None)
Quarter: 2012Q2

REPORT INFORMATION
  Report Type: 
  Country: None (occurrence: None)
  Receive Date: 20120501
  Receipt Date: 20090708
  Transmission Date: 20120825
  Serious: No
  Sender: FDA-Public Use
  Company Number: US-TEVA-2009008294

PATIENT
  Sex: Female
  Weight: 59.928 kg

DRUGS (9)
  1. LEVOTHYROXINE SODIUM [Concomitant]
  2. HYDROCODONE BITARTRATE AND ACETAMINOPHEN [Concomitant]
  3. TRAMADOL HCL [Concomitant]
  4. HYDROCHLOROTHIAZIDE [Concomitant]
  5. NUVIGIL [Suspect]
     Indication: SOMNOLENCE
     Dosage: 50 MILLIGRAM;
     Route: 048
     Dates: start: 20090619
  6. CLONAZEPAM [Concomitant]
  7. MIRAPEX [Concomitant]
     Indication: RESTLESS LEGS SYNDROME
  8. FOLIC ACID [Concomitant]
  9. DIOVAN [Concomitant]

REACTIONS (2)
  - URTICARIA [None]
  - PRURITUS [None]
